FAERS Safety Report 7369425-9 (Version None)
Quarter: 2011Q1

REPORT INFORMATION
  Report Type: 
  Country: None (occurrence: None)
  Receive Date: 20110321
  Receipt Date: 20110321
  Transmission Date: 20110831
  Serious: No
  Sender: FDA-Public Use
  Company Number: None

PATIENT
  Sex: Female

DRUGS (1)
  1. BETASERON [Suspect]
     Indication: MULTIPLE SCLEROSIS
     Dosage: SEE EVENT DESCRIPTION QOD SUBCUTANEOUSLY
     Route: 058
     Dates: start: 20080801

REACTIONS (3)
  - TREATMENT NONCOMPLIANCE [None]
  - TOXICITY TO VARIOUS AGENTS [None]
  - DYSARTHRIA [None]
